FAERS Safety Report 9251695 (Version 2)
Quarter: 2013Q3

REPORT INFORMATION
  Report Type: Spontaneous
  Country: US (occurrence: US)
  Receive Date: 20130424
  Receipt Date: 20130704
  Transmission Date: 20140515
  Serious: Yes (Hospitalization, Disabling, Other)
  Sender: FDA-Public Use
  Company Number: US-ASTRAZENECA-2013SE27306

PATIENT
  Age: 47 Year
  Sex: Female
  Weight: 87.1 kg

DRUGS (20)
  1. NEXIUM [Suspect]
     Indication: GASTROOESOPHAGEAL REFLUX DISEASE
     Dosage: ONCE MAY BE TWICE
     Route: 048
     Dates: start: 2002
  2. NEXIUM [Suspect]
     Indication: GASTROOESOPHAGEAL REFLUX DISEASE
     Route: 048
     Dates: start: 20110404
  3. PREVACID [Concomitant]
     Indication: GASTROOESOPHAGEAL REFLUX DISEASE
     Dosage: ONCE A DAILY
     Dates: start: 2009, end: 2010
  4. ALKA SELTZER [Concomitant]
  5. HYDROCODONE [Concomitant]
  6. FEXOFENADINE [Concomitant]
  7. FLUTICASONE [Concomitant]
  8. OMEPRAZOLE [Concomitant]
  9. TRAMADOL [Concomitant]
  10. EFFEXOR [Concomitant]
  11. LISINOPRIL [Concomitant]
  12. MIRAPEX [Concomitant]
  13. CHANTIX [Concomitant]
  14. VENLAFAXINE [Concomitant]
  15. DOXYCYCL [Concomitant]
  16. ONDANSETRON [Concomitant]
  17. FAMOTIDINE [Concomitant]
  18. CARVEDILOL [Concomitant]
  19. AZITHROMYCIN [Concomitant]
  20. TRAZODONE [Concomitant]

REACTIONS (11)
  - Osteoarthritis [Unknown]
  - Fall [Unknown]
  - Gallbladder operation [Unknown]
  - Ear infection [Unknown]
  - Carpal tunnel syndrome [Unknown]
  - Osteoporosis [Unknown]
  - Bone density decreased [Unknown]
  - Multiple fractures [Unknown]
  - Glaucoma [Unknown]
  - Vitamin D deficiency [Unknown]
  - Osteopenia [Unknown]
